FAERS Safety Report 19922933 (Version 1)
Quarter: 2021Q4

REPORT INFORMATION
  Report Type: Spontaneous
  Country: US (occurrence: US)
  Receive Date: 20211006
  Receipt Date: 20211006
  Transmission Date: 20220303
  Serious: No
  Sender: FDA-Public Use
  Company Number: US-LAVIPHARM SA-2120240

PATIENT
  Age: 5 Year
  Sex: Male

DRUGS (2)
  1. CATAPRES-TTS [Suspect]
     Active Substance: CLONIDINE
     Indication: Behaviour disorder
     Dates: start: 2021
  2. CATAPRES [Suspect]
     Active Substance: CLONIDINE HYDROCHLORIDE
     Dates: start: 202010

REACTIONS (3)
  - Rash [Not Recovered/Not Resolved]
  - Off label use [Unknown]
  - Product prescribing issue [Unknown]
